FAERS Safety Report 7565167-5 (Version None)
Quarter: 2011Q2

REPORT INFORMATION
  Report Type: 
  Country: None (occurrence: None)
  Receive Date: 20110622
  Receipt Date: 20110131
  Transmission Date: 20111010
  Serious: Yes (Death)
  Sender: FDA-Public Use
  Company Number: US-MYLANLABS-2010S1023737

PATIENT
  Age: 37 Year
  Sex: Female

DRUGS (16)
  1. ATENOLOL [Concomitant]
  2. LEVOTHYROXINE SODIUM [Concomitant]
  3. ILOPERIDONE [Concomitant]
  4. DEPAKOTE [Concomitant]
  5. METFORMIN HCL [Concomitant]
  6. ARTANE [Concomitant]
  7. LAMICTAL [Concomitant]
  8. CLOZAPINE [Suspect]
     Route: 048
  9. GLIPIZIDE [Concomitant]
  10. LISINOPRIL [Concomitant]
  11. ACTOS [Concomitant]
  12. CLOZAPINE [Suspect]
     Route: 048
  13. GEMFIBROZIL [Concomitant]
  14. SIMVASTATIN [Concomitant]
  15. ADVAIR DISKUS 100/50 [Concomitant]
  16. CLOZAPINE [Suspect]

REACTIONS (1)
  - DEATH [None]
